FAERS Safety Report 9283568 (Version 3)
Quarter: 2013Q3

REPORT INFORMATION
  Report Type: Spontaneous
  Country: US (occurrence: US)
  Receive Date: 20130510
  Receipt Date: 20130702
  Transmission Date: 20140515
  Serious: Yes (Hospitalization)
  Sender: FDA-Public Use
  Company Number: US-TEVA-403420USA

PATIENT
  Age: 81 Year
  Sex: Female

DRUGS (2)
  1. VERAPAMIL [Suspect]
     Indication: BLOOD PRESSURE INCREASED
     Dosage: 180 MILLIGRAM DAILY;
     Route: 048
     Dates: end: 20130507
  2. ATENOLOL [Suspect]
     Indication: HYPERTENSION

REACTIONS (10)
  - Aortic valve stenosis [Unknown]
  - Dizziness [Unknown]
  - Syncope [Unknown]
  - Fall [Unknown]
  - Contusion [Unknown]
  - Joint swelling [Not Recovered/Not Resolved]
  - Joint swelling [Recovered/Resolved]
  - Dyspnoea [Not Recovered/Not Resolved]
  - Feeling abnormal [Unknown]
  - Heart rate decreased [Unknown]
